FAERS Safety Report 8911580 (Version 2)
Quarter: 2012Q4

REPORT INFORMATION
  Report Type: Report from Study
  Country: DE (occurrence: DE)
  Receive Date: 20121116
  Receipt Date: 20121128
  Transmission Date: 20130627
  Serious: Yes (Life-Threatening, Hospitalization)
  Sender: FDA-Public Use
  Company Number: DE-PFIZER INC-2012282499

PATIENT
  Age: 59 Year
  Sex: Female
  Weight: 136 kg

DRUGS (10)
  1. SOMAVERT [Suspect]
     Indication: ACROMEGALY
     Dosage: 10 mg, 1x/day, 7 injections/week
     Dates: start: 20100125, end: 20100217
  2. MARCUMAR [Concomitant]
     Dosage: UNK
     Dates: start: 20100122
  3. L-THYROXIN [Concomitant]
     Indication: TSH DECREASED
     Dosage: UNK
     Route: 048
     Dates: start: 20100122
  4. FORMOLICH [Concomitant]
     Indication: RESPIRATORY DISORDER
     Dosage: UNK
     Dates: start: 20100122
  5. SIMVABETA [Concomitant]
     Indication: LIPID METABOLISM DISORDER
     Dosage: UNK
     Route: 048
     Dates: start: 20100122
  6. ENALAPRIL [Concomitant]
     Indication: ARRHYTHMIA
     Dosage: UNK
     Route: 048
     Dates: start: 20100122
  7. MEDIABET [Concomitant]
     Indication: TYPE II DIABETES MELLITUS
     Dosage: UNK
     Route: 048
     Dates: start: 1997
  8. LEVEMIR [Concomitant]
     Indication: TYPE 2 DIABETES MELLITUS
     Dosage: UNK
     Route: 058
     Dates: start: 1997
  9. NOVORAPID [Concomitant]
     Indication: TYPE 2 DIABETES MELLITUS
     Dosage: UNK
     Route: 058
     Dates: start: 1997
  10. LANREOTIDE [Concomitant]
     Dosage: UNK
     Dates: start: 20100217

REACTIONS (1)
  - Dyspnoea [Recovered/Resolved]
